FAERS Safety Report 8462786-9 (Version None)
Quarter: 2012Q2

REPORT INFORMATION
  Report Type: 
  Country: None (occurrence: None)
  Receive Date: 20120625
  Receipt Date: 20120615
  Transmission Date: 20120825
  Serious: Yes (Other)
  Sender: FDA-Public Use
  Company Number: US-ROCHE-1079289

PATIENT
  Sex: Male
  Weight: 73.094 kg

DRUGS (2)
  1. RIBASPHERE [Suspect]
     Indication: HEPATITIS C
     Route: 048
     Dates: start: 20120406
  2. PEGASYS [Suspect]
     Indication: HEPATITIS C
     Route: 058
     Dates: start: 20120406

REACTIONS (8)
  - BLOOD TEST ABNORMAL [None]
  - WEIGHT DECREASED [None]
  - PRURITUS [None]
  - FATIGUE [None]
  - VERTIGO [None]
  - DECREASED APPETITE [None]
  - DYSPNOEA [None]
  - DRY SKIN [None]
